FAERS Safety Report 7591944-0 (Version None)
Quarter: 2011Q3

REPORT INFORMATION
  Report Type: 
  Country: None (occurrence: None)
  Receive Date: 20110706
  Receipt Date: 20110628
  Transmission Date: 20111222
  Serious: Yes (Life-Threatening)
  Sender: FDA-Public Use
  Company Number: HK-US-EMD SERONO, INC.-7067874

PATIENT
  Age: 42 Year
  Sex: Female

DRUGS (5)
  1. CHORIOGONADOTROPIN ALFA [Suspect]
     Indication: INFERTILITY FEMALE
     Route: 030
  2. GONADOTROPIN RELEASING HORMONE AGONIST [Concomitant]
     Indication: INFERTILITY FEMALE
  3. RECOMBINANT HUMAN FOLLICLE-STIMULATING HORMONE (R-HFSH) [Suspect]
     Indication: INFERTILITY FEMALE
  4. LUTEINISING HORMONE [Suspect]
     Indication: INFERTILITY FEMALE
  5. PROGESTERONE [Suspect]
     Indication: INFERTILITY FEMALE
     Route: 067

REACTIONS (2)
  - CEREBRAL VENOUS THROMBOSIS [None]
  - OVARIAN HYPERSTIMULATION SYNDROME [None]
